FAERS Safety Report 5853046-0 (Version None)
Quarter: 2008Q3

REPORT INFORMATION
  Report Type: 
  Country: None (occurrence: None)
  Receive Date: 20080814
  Receipt Date: 20080516
  Transmission Date: 20090109
  Serious: No
  Sender: FDA-Public Use
  Company Number: WAES 0805USA03770

PATIENT

DRUGS (1)
  1. ISENTRESS [Suspect]

REACTIONS (1)
  - CHOLELITHIASIS [None]
